FAERS Safety Report 23471104 (Version 1)
Quarter: 2024Q1

REPORT INFORMATION
  Report Type: Spontaneous
  Country: None (occurrence: CA)
  Receive Date: 20240202
  Receipt Date: 20240202
  Transmission Date: 20240409
  Serious: Yes (Other)
  Sender: FDA-Public Use
  Company Number: CA-B.Braun Medical Inc.-2152457

PATIENT
  Age: 57 Year
  Sex: Female

DRUGS (3)
  1. POTASSIUM CHLORIDE [Suspect]
     Active Substance: POTASSIUM CHLORIDE
  2. AFINITOR [Suspect]
     Active Substance: EVEROLIMUS
  3. SANDOSTATIN [Suspect]
     Active Substance: OCTREOTIDE ACETATE

REACTIONS (11)
  - Balance disorder [None]
  - Blood pressure increased [None]
  - Blood pressure systolic increased [None]
  - Dizziness [None]
  - Hypertension [None]
  - Inappropriate schedule of product administration [None]
  - Lower respiratory tract infection [None]
  - Malignant neoplasm progression [None]
  - Needle issue [None]
  - Pancreatic neuroendocrine tumour [None]
  - Stress [None]
